FAERS Safety Report 21234276 (Version 1)
Quarter: 2022Q3

REPORT INFORMATION
  Report Type: Spontaneous
  Country: US (occurrence: US)
  Receive Date: 20220819
  Receipt Date: 20220819
  Transmission Date: 20221026
  Serious: Yes (Death, Other)
  Sender: FDA-Public Use
  Company Number: US-Shilpa Medicare Limited-SML-US-2022-00983

PATIENT
  Age: 69 Year
  Sex: Male

DRUGS (5)
  1. AZACITIDINE [Suspect]
     Active Substance: AZACITIDINE
     Indication: Acute myeloid leukaemia
  2. NIVOLUMAB [Suspect]
     Active Substance: NIVOLUMAB
     Indication: Acute myeloid leukaemia
  3. NIVOLUMAB [Suspect]
     Active Substance: NIVOLUMAB
  4. IPILIMUMAB [Suspect]
     Active Substance: IPILIMUMAB
     Indication: Acute myeloid leukaemia
  5. IPILIMUMAB [Suspect]
     Active Substance: IPILIMUMAB

REACTIONS (3)
  - Acute myeloid leukaemia [Fatal]
  - Pneumonitis [Recovered/Resolved]
  - Drug ineffective [Unknown]
